FAERS Safety Report 24051246 (Version 2)
Quarter: 2024Q3

REPORT INFORMATION
  Report Type: Spontaneous
  Country: CN (occurrence: CN)
  Receive Date: 20240704
  Receipt Date: 20240712
  Transmission Date: 20241016
  Serious: Yes (Hospitalization, Other)
  Sender: SANOFI AVENTIS
  Company Number: CN-MLMSERVICE-20240617-PI102486-00097-1

PATIENT
  Age: 53 Year
  Sex: Female

DRUGS (11)
  1. ANTI-THYMOCYTE GLOBULIN (RABBIT) NOS [Suspect]
     Active Substance: LAPINE T-LYMPHOCYTE IMMUNE GLOBULIN
     Indication: Bone marrow conditioning regimen
     Dosage: 5.2 MG/KG ON DAYS ?2 TO ?1
  2. ANTI-THYMOCYTE GLOBULIN (RABBIT) NOS [Suspect]
     Active Substance: LAPINE T-LYMPHOCYTE IMMUNE GLOBULIN
     Indication: Precursor T-lymphoblastic lymphoma/leukaemia
  3. CYCLOPHOSPHAMIDE [Suspect]
     Active Substance: CYCLOPHOSPHAMIDE
     Indication: Bone marrow conditioning regimen
     Dosage: 50 MG/KG ON DAY +4
  4. CYCLOPHOSPHAMIDE [Suspect]
     Active Substance: CYCLOPHOSPHAMIDE
     Indication: Precursor T-lymphoblastic lymphoma/leukaemia
     Dosage: 100 MG/KG ON DAYS ?5 TO ?4
  5. ETOPOSIDE [Suspect]
     Active Substance: ETOPOSIDE
     Indication: Bone marrow conditioning regimen
     Dosage: 20 MG/KG ON DAY ?5 TO ?4
  6. ETOPOSIDE [Suspect]
     Active Substance: ETOPOSIDE
     Indication: Precursor T-lymphoblastic lymphoma/leukaemia
  7. MYCOPHENOLATE SODIUM [Suspect]
     Active Substance: MYCOPHENOLATE SODIUM
     Indication: Prophylaxis against graft versus host disease
     Dosage: 720 MG ON DAYS +4 TO +34
  8. CYCLOSPORINE [Suspect]
     Active Substance: CYCLOSPORINE
     Indication: Bone marrow conditioning regimen
     Dosage: 70 MG, QD FROM DAY +4
  9. CYCLOSPORINE [Suspect]
     Active Substance: CYCLOSPORINE
     Indication: Precursor T-lymphoblastic lymphoma/leukaemia
  10. POSACONAZOLE [Concomitant]
     Active Substance: POSACONAZOLE
     Indication: Antifungal prophylaxis
     Dosage: 0.3 G, QD
  11. VALACYCLOVIR [Concomitant]
     Active Substance: VALACYCLOVIR HYDROCHLORIDE
     Indication: Antiviral prophylaxis
     Dosage: 1.2 G, QD
     Route: 048

REACTIONS (11)
  - Encephalitis autoimmune [Recovered/Resolved]
  - Memory impairment [Recovered/Resolved]
  - Affect lability [Recovered/Resolved]
  - Muscular weakness [Recovered/Resolved]
  - Central nervous system lesion [Recovered/Resolved]
  - Hallucination [Recovered/Resolved]
  - Amnesia [Recovered/Resolved]
  - Unresponsive to stimuli [Recovered/Resolved]
  - Disturbance in attention [Recovered/Resolved]
  - Cognitive disorder [Recovered/Resolved]
  - Cytomegalovirus infection [Recovered/Resolved]
